FAERS Safety Report 5541965-4 (Version None)
Quarter: 2007Q4

REPORT INFORMATION
  Report Type: 
  Country: None (occurrence: None)
  Receive Date: 20071205
  Receipt Date: 20071121
  Transmission Date: 20080405
  Serious: Yes (Life-Threatening, Hospitalization)
  Sender: FDA-Public Use
  Company Number: SPV1-2007-05061

PATIENT
  Age: 28 Year
  Sex: Male

DRUGS (2)
  1. PENTASA [Suspect]
     Indication: COLITIS ULCERATIVE
     Dosage: 4 G DAILY, ORAL; 1 G DAILY, RECTAL
     Route: 048
     Dates: start: 20071015, end: 20071025
  2. PENTASA [Suspect]
     Indication: COLITIS ULCERATIVE
     Dosage: 4 G DAILY, ORAL; 1 G DAILY, RECTAL
     Route: 048
     Dates: start: 20071015, end: 20071025

REACTIONS (1)
  - DEHYDRATION [None]
